FAERS Safety Report 7511999-9 (Version None)
Quarter: 2011Q2

REPORT INFORMATION
  Report Type: 
  Country: None (occurrence: None)
  Receive Date: 20110531
  Receipt Date: 20110518
  Transmission Date: 20111010
  Serious: Yes (Other)
  Sender: FDA-Public Use
  Company Number: PHHY2011BR43894

PATIENT
  Sex: Female
  Weight: 90 kg

DRUGS (5)
  1. ATROVENT [Concomitant]
  2. FORMOTEROL FUMARATE [Suspect]
     Indication: ASTHMA
     Dosage: EVERY 12 HOURS
  3. FORMOTEROL FUMARATE [Suspect]
     Dosage: 1 TIME DAILY
  4. BEROTEC [Concomitant]
     Dosage: 1 INHALATION EVERY 6 HOURS
  5. FORMOTEROL FUMARATE [Suspect]
     Dosage: ALTERANATE DAYS, 1 TIME DAILY

REACTIONS (5)
  - BEDRIDDEN [None]
  - ASTHMA [None]
  - DEVICE MALFUNCTION [None]
  - PNEUMONIA [None]
  - INCORRECT ROUTE OF DRUG ADMINISTRATION [None]
